FAERS Safety Report 6767358-X (Version None)
Quarter: 2010Q2

REPORT INFORMATION
  Report Type: 
  Country: None (occurrence: None)
  Receive Date: 20100614
  Receipt Date: 20100514
  Transmission Date: 20101027
  Serious: No
  Sender: FDA-Public Use
  Company Number: US-BAYER-201015642BCC

PATIENT
  Age: 77 Year
  Sex: Female
  Weight: 84 kg

DRUGS (4)
  1. ALEVE (CAPLET) [Suspect]
     Indication: ARTHRALGIA
     Dosage: TOTAL DAILY DOSE: 1760 MG  UNIT DOSE: 220 MG
     Route: 048
     Dates: start: 20100101
  2. SYNTHROID [Concomitant]
     Route: 065
  3. FLOXOMAX [Concomitant]
     Route: 065
  4. ZOCOR [Concomitant]
     Route: 065

REACTIONS (1)
  - ARTHRALGIA [None]
